FAERS Safety Report 24442226 (Version 2)
Quarter: 2024Q4

REPORT INFORMATION
  Report Type: Report from Study
  Country: CL (occurrence: CL)
  Receive Date: 20241016
  Receipt Date: 20241017
  Transmission Date: 20250115
  Serious: No
  Sender: ROCHE
  Company Number: CL-ROCHE-3536584

PATIENT
  Age: 3 Year
  Sex: Male
  Weight: 12.0 kg

DRUGS (1)
  1. HEMLIBRA [Suspect]
     Active Substance: EMICIZUMAB-KXWH
     Indication: Haemophilia
     Dosage: 60 MG IN 0.4 ML, PATIENT USES A VIAL EVERY 28 DAYS (1 BOTTLE PER MONTH)
     Route: 065
     Dates: start: 202305

REACTIONS (1)
  - Weight increased [Recovered/Resolved]

NARRATIVE: CASE EVENT DATE: 20240315
